FAERS Safety Report 6212672-X (Version None)
Quarter: 2009Q2

REPORT INFORMATION
  Report Type: 
  Country: None (occurrence: None)
  Receive Date: 20090603
  Receipt Date: 20090527
  Transmission Date: 20091009
  Serious: Yes (Life-Threatening, Hospitalization)
  Sender: FDA-Public Use
  Company Number: ES-EISAI INC.-E7272-00020-SPO-ES

PATIENT
  Sex: Male

DRUGS (2)
  1. ONTAK [Suspect]
     Indication: T-CELL LYMPHOMA
     Route: 041
     Dates: start: 20081120, end: 20090209
  2. ONTAK [Suspect]
     Route: 041
     Dates: start: 20081120

REACTIONS (2)
  - CACHEXIA [None]
  - GASTROINTESTINAL DISORDER [None]
